FAERS Safety Report 25422525 (Version 2)
Quarter: 2025Q2

REPORT INFORMATION
  Report Type: Spontaneous
  Country: AU (occurrence: AU)
  Receive Date: 20250611
  Receipt Date: 20250611
  Transmission Date: 20250716
  Serious: Yes (Life-Threatening, Hospitalization)
  Sender: PFIZER
  Company Number: AU-TAKEDA-2025TUS052957

PATIENT
  Age: 68 Year
  Sex: Male

DRUGS (39)
  1. PANTOPRAZOLE [Suspect]
     Active Substance: PANTOPRAZOLE
     Dosage: 40 MG, 1X/DAY
     Route: 042
     Dates: start: 20250318, end: 20250324
  2. PANTOPRAZOLE [Suspect]
     Active Substance: PANTOPRAZOLE
     Dosage: 40 MG, 1X/DAY
     Route: 048
     Dates: start: 20250325, end: 20250330
  3. PANTOPRAZOLE [Suspect]
     Active Substance: PANTOPRAZOLE
     Dosage: 40 MG, 1X/DAY
     Route: 042
     Dates: start: 20250331, end: 20250401
  4. PANTOPRAZOLE [Suspect]
     Active Substance: PANTOPRAZOLE
     Dosage: 40 MG, 1X/DAY
     Route: 048
     Dates: start: 20250402, end: 20250405
  5. MOXIFLOXACIN [Suspect]
     Active Substance: MOXIFLOXACIN
     Indication: Product used for unknown indication
     Route: 042
     Dates: start: 20250318, end: 20250323
  6. CEFTRIAXONE [Concomitant]
     Active Substance: CEFTRIAXONE
  7. KETAMINE HYDROCHLORIDE [Concomitant]
     Active Substance: KETAMINE HYDROCHLORIDE
     Dates: start: 20250317
  8. IPRATROPIUM BROMIDE [Concomitant]
     Active Substance: IPRATROPIUM BROMIDE
     Dates: start: 20250317, end: 20250404
  9. ALBUTEROL SULFATE [Concomitant]
     Active Substance: ALBUTEROL SULFATE
     Dates: start: 20250317, end: 20250404
  10. HYDROCORTISONE [Concomitant]
     Active Substance: HYDROCORTISONE
     Route: 042
     Dates: start: 20250317, end: 20250326
  11. FUROSEMIDE [Concomitant]
     Active Substance: FUROSEMIDE
     Route: 042
     Dates: start: 20250318, end: 20250326
  12. MEROPENEM [Concomitant]
     Active Substance: MEROPENEM
     Route: 042
     Dates: start: 20250317, end: 20250318
  13. PRAZOSIN HYDROCHLORIDE [Concomitant]
     Active Substance: PRAZOSIN HYDROCHLORIDE
     Route: 042
     Dates: start: 20250322, end: 20250324
  14. PREDNISOLONE [Concomitant]
     Active Substance: PREDNISOLONE
     Dosage: 25 MILLIGRAM, QD
     Dates: start: 20250324, end: 20250405
  15. PREDNISOLONE [Concomitant]
     Active Substance: PREDNISOLONE
     Dosage: 50 MILLIGRAM, QD
     Dates: start: 20250408, end: 20250411
  16. PREDNISOLONE [Concomitant]
     Active Substance: PREDNISOLONE
     Dosage: 25 MILLIGRAM, QD
     Dates: start: 20250412
  17. HYDROCHLOROTHIAZIDE [Concomitant]
     Active Substance: HYDROCHLOROTHIAZIDE
     Dosage: 25 MILLIGRAM, QD
     Dates: start: 20250324, end: 20250326
  18. TIOTROPIUM [Concomitant]
     Active Substance: TIOTROPIUM
     Dates: start: 20250325, end: 20250330
  19. TELMISARTAN [Concomitant]
     Active Substance: TELMISARTAN
     Dates: start: 20250324
  20. DOCUSATE SODIUM\SENNOSIDE B [Concomitant]
     Active Substance: DOCUSATE SODIUM\SENNOSIDE B
     Dates: start: 20250318
  21. ENOXAPARIN SODIUM [Concomitant]
     Active Substance: ENOXAPARIN SODIUM
  22. MOVICOL [Concomitant]
     Active Substance: POLYETHYLENE GLYCOL 3350\POTASSIUM CHLORIDE\SODIUM BICARBONATE\SODIUM CHLORIDE
  23. EPINEPHRINE BITARTRATE [Concomitant]
     Active Substance: EPINEPHRINE BITARTRATE
  24. AMINOPHYLLINE [Concomitant]
     Active Substance: AMINOPHYLLINE
  25. AZITHROMYCIN [Concomitant]
     Active Substance: AZITHROMYCIN
  26. BUDESONIDE [Concomitant]
     Active Substance: BUDESONIDE
  27. CISATRACURIUM BESYLATE [Concomitant]
     Active Substance: CISATRACURIUM BESYLATE
  28. FENTANYL [Concomitant]
     Active Substance: FENTANYL
  29. FUROSEMIDE [Concomitant]
     Active Substance: FUROSEMIDE
  30. HEPARIN SODIUM [Concomitant]
     Active Substance: HEPARIN SODIUM
  31. MAGNESIUM SULFATE [Concomitant]
     Active Substance: MAGNESIUM SULFATE
  32. METARAMINOL BITARTRATE [Concomitant]
     Active Substance: METARAMINOL BITARTRATE
  33. METOCLOPRAMIDE [Concomitant]
     Active Substance: METOCLOPRAMIDE
  34. MIDAZOLAM [Concomitant]
     Active Substance: MIDAZOLAM
  35. NOREPINEPHRINE BITARTRATE [Concomitant]
     Active Substance: NOREPINEPHRINE BITARTRATE
  36. NYSTATIN [Concomitant]
     Active Substance: NYSTATIN
  37. ONDANSETRON [Concomitant]
     Active Substance: ONDANSETRON
  38. POTASSIUM CHLORIDE [Concomitant]
     Active Substance: POTASSIUM CHLORIDE
  39. PROPOFOL [Concomitant]
     Active Substance: PROPOFOL

REACTIONS (2)
  - Stevens-Johnson syndrome [Not Recovered/Not Resolved]
  - Toxic epidermal necrolysis [Unknown]

NARRATIVE: CASE EVENT DATE: 20250405
